FAERS Safety Report 6519779-8 (Version None)
Quarter: 2009Q4

REPORT INFORMATION
  Report Type: 
  Country: None (occurrence: None)
  Receive Date: 20091228
  Receipt Date: 20091228
  Transmission Date: 20100525
  Serious: Yes (Life-Threatening, Hospitalization)
  Sender: FDA-Public Use
  Company Number: None

PATIENT
  Age: 49 Year
  Sex: Female

DRUGS (2)
  1. TRAMADOL HCL [Suspect]
     Indication: PAIN
     Dosage: 50 MG PRN PO
     Route: 048
     Dates: start: 20090827, end: 20090901
  2. MIRTAZAPINE [Suspect]
     Indication: DEPRESSION
     Dosage: 60 MG HS PO
     Route: 048
     Dates: start: 20050325, end: 20090901

REACTIONS (5)
  - HYPOTENSION [None]
  - NAUSEA [None]
  - RENAL FAILURE ACUTE [None]
  - RHABDOMYOLYSIS [None]
  - VOMITING [None]
